FAERS Safety Report 7315417 (Version 1)
Quarter: 2020Q3

REPORT INFORMATION
  Report Type: Report from Study
  Country: DE (occurrence: DE)
  Receive Date: 20100311
  Receipt Date: 20100311
  Transmission Date: 20201105
  Serious: Yes (Life-Threatening, Hospitalization, Other)
  Sender: FDA-Public Use
  Company Number: DE-ROCHE-684461

PATIENT
  Age: 83 Year
  Sex: Female
  Weight: 51 kg

DRUGS (4)
  1. IBANDRONIC ACID. [Suspect]
     Active Substance: IBANDRONIC ACID
     Indication: BREAST CANCER
     Dosage: DOSE 6 MG FREQUENCY WAS EVERY 28 DAYS
     Route: 042
     Dates: start: 20071119, end: 20090309
  2. PHENPROCOUMON [Concomitant]
     Active Substance: PHENPROCOUMON
     Route: 048
     Dates: start: 20090320
  3. BISOPROLOL [Concomitant]
     Active Substance: BISOPROLOL
     Dosage: FREQUENCY REPORTED AS 1?0?1/2
     Route: 048
     Dates: start: 20090320
  4. ARIMIDEX [Suspect]
     Active Substance: ANASTROZOLE
     Indication: BREAST CANCER
     Route: 048
     Dates: start: 20080505

REACTIONS (4)
  - Anaemia [Not Recovered/Not Resolved]
  - Pneumonia [Recovered/Resolved]
  - Phlebitis [Recovered/Resolved]
  - Myocardial infarction [Recovered/Resolved]

NARRATIVE: CASE EVENT DATE: 20090301
